FAERS Safety Report 7897773-2 (Version None)
Quarter: 2011Q4

REPORT INFORMATION
  Report Type: 
  Country: None (occurrence: None)
  Receive Date: 20111107
  Receipt Date: 20111031
  Transmission Date: 20120403
  Serious: Yes (Hospitalization)
  Sender: FDA-Public Use
  Company Number: US-AMGEN-USASP2011056448

PATIENT
  Age: 20 Year
  Sex: Female

DRUGS (1)
  1. ENBREL [Suspect]
     Indication: RHEUMATOID ARTHRITIS
     Dosage: 50 MG, QWK
     Dates: start: 20090202, end: 20110901

REACTIONS (5)
  - TONSILLITIS [None]
  - BRONCHITIS [None]
  - DEHYDRATION [None]
  - TONSILLECTOMY [None]
  - SINUSITIS [None]
